FAERS Safety Report 6443988-X (Version None)
Quarter: 2009Q4

REPORT INFORMATION
  Report Type: 
  Country: None (occurrence: None)
  Receive Date: 20091116
  Receipt Date: 20091116
  Transmission Date: 20100525
  Serious: Yes (Disabling)
  Sender: FDA-Public Use
  Company Number: None

PATIENT
  Age: 38 Year
  Sex: Female
  Weight: 90.7194 kg

DRUGS (1)
  1. LEVAQUIN [Suspect]
     Indication: CHRONIC TONSILLITIS
     Dates: start: 20080808, end: 20080813

REACTIONS (5)
  - ARTHRALGIA [None]
  - DEPRESSION [None]
  - MYALGIA [None]
  - TARSAL TUNNEL SYNDROME [None]
  - TENDONITIS [None]
